FAERS Safety Report 6479729-X (Version None)
Quarter: 2009Q4

REPORT INFORMATION
  Report Type: 
  Country: None (occurrence: None)
  Receive Date: 20091208
  Receipt Date: 20091130
  Transmission Date: 20100525
  Serious: Yes (Other)
  Sender: FDA-Public Use
  Company Number: US-BAYER-200941130NA

PATIENT
  Age: 34 Year
  Sex: Female

DRUGS (7)
  1. MAGNEVIST [Suspect]
     Indication: NUCLEAR MAGNETIC RESONANCE IMAGING
  2. OMNISCAN [Suspect]
     Indication: NUCLEAR MAGNETIC RESONANCE IMAGING
  3. OPTIMARK [Suspect]
     Indication: NUCLEAR MAGNETIC RESONANCE IMAGING
  4. MULTIHANCE [Suspect]
     Indication: NUCLEAR MAGNETIC RESONANCE IMAGING
  5. PROHANCE [Suspect]
     Indication: NUCLEAR MAGNETIC RESONANCE IMAGING
  6. UNSPECIFIED GADOLINIUM-BASED CONTRAST AGENT [Suspect]
     Dosage: IN OR AROUND AUG-2002 THROUGH MAR-2003
     Dates: start: 20020801, end: 20020801
  7. UNSPECIFIED GADOLINIUM-BASED CONTRAST AGENT [Suspect]
     Dosage: IN OR AROUND AUG-2002 THROUGH MAR-2003
     Dates: start: 20030301, end: 20030301

REACTIONS (21)
  - BLISTER [None]
  - BONE PAIN [None]
  - BURNING SENSATION [None]
  - DEFORMITY [None]
  - GENERAL PHYSICAL HEALTH DETERIORATION [None]
  - HYPOAESTHESIA [None]
  - JOINT RANGE OF MOTION DECREASED [None]
  - LIGAMENT DISORDER [None]
  - LIGAMENT PAIN [None]
  - MUSCULAR WEAKNESS [None]
  - MUSCULOSKELETAL STIFFNESS [None]
  - NEPHROGENIC SYSTEMIC FIBROSIS [None]
  - PAIN OF SKIN [None]
  - PEAU D'ORANGE [None]
  - PRURITUS [None]
  - RASH [None]
  - SCAR [None]
  - SKIN DISCOLOURATION [None]
  - SKIN HYPERTROPHY [None]
  - SKIN SWELLING [None]
  - SKIN TIGHTNESS [None]
